FAERS Safety Report 22399113 (Version 1)
Quarter: 2023Q2

REPORT INFORMATION
  Report Type: Spontaneous
  Country: US (occurrence: US)
  Receive Date: 20230602
  Receipt Date: 20230602
  Transmission Date: 20230721
  Serious: Yes (Other)
  Sender: FDA-Public Use
  Company Number: US-TEVA-2023-US-2892229

PATIENT
  Age: 50 Year
  Sex: Female

DRUGS (2)
  1. COPAXONE [Suspect]
     Active Substance: GLATIRAMER ACETATE
     Indication: Product used for unknown indication
     Dosage: FORM STRENGTH: UNKNOWN
     Route: 065
  2. COPAXONE [Suspect]
     Active Substance: GLATIRAMER ACETATE
     Dosage: FORM STRENGTH: UNKNOWN
     Route: 065
     Dates: start: 20230522

REACTIONS (6)
  - Hypoaesthesia [Unknown]
  - Blood pressure increased [Unknown]
  - Vertigo [Unknown]
  - Paraesthesia [Unknown]
  - Injection site pain [Unknown]
  - Presyncope [Unknown]

NARRATIVE: CASE EVENT DATE: 20230522
